FAERS Safety Report 20009528 (Version 2)
Quarter: 2022Q2

REPORT INFORMATION
  Report Type: Report from Study
  Country: DE (occurrence: DE)
  Receive Date: 20211029
  Receipt Date: 20220629
  Transmission Date: 20220721
  Serious: Yes (Hospitalization, Other)
  Sender: FDA-Public Use
  Company Number: DE-TAKEDA-2021TUS066730

PATIENT
  Age: 58 Year
  Sex: Male

DRUGS (13)
  1. TEDUGLUTIDE [Suspect]
     Active Substance: TEDUGLUTIDE
     Indication: Short-bowel syndrome
     Dosage: 3.65 MILLIGRAM, QD
     Route: 042
     Dates: start: 20160825, end: 201702
  2. TEDUGLUTIDE [Suspect]
     Active Substance: TEDUGLUTIDE
     Indication: Short-bowel syndrome
     Dosage: 3.65 MILLIGRAM, QD
     Route: 042
     Dates: start: 20160825, end: 201702
  3. TEDUGLUTIDE [Suspect]
     Active Substance: TEDUGLUTIDE
     Indication: Short-bowel syndrome
     Dosage: 3.65 MILLIGRAM, QD
     Route: 042
     Dates: start: 20160825, end: 201702
  4. TEDUGLUTIDE [Suspect]
     Active Substance: TEDUGLUTIDE
     Indication: Short-bowel syndrome
     Dosage: 3.65 MILLIGRAM, QD
     Route: 042
     Dates: start: 20160825, end: 201702
  5. TEDUGLUTIDE [Suspect]
     Active Substance: TEDUGLUTIDE
     Dosage: 3.85 MILLIGRAM, QD
     Route: 042
     Dates: start: 201702
  6. TEDUGLUTIDE [Suspect]
     Active Substance: TEDUGLUTIDE
     Dosage: 3.85 MILLIGRAM, QD
     Route: 042
     Dates: start: 201702
  7. TEDUGLUTIDE [Suspect]
     Active Substance: TEDUGLUTIDE
     Dosage: 3.85 MILLIGRAM, QD
     Route: 042
     Dates: start: 201702
  8. TEDUGLUTIDE [Suspect]
     Active Substance: TEDUGLUTIDE
     Dosage: 3.85 MILLIGRAM, QD
     Route: 042
     Dates: start: 201702
  9. DENOSUMAB [Concomitant]
     Active Substance: DENOSUMAB
     Indication: Osteonecrosis
     Dosage: ,EVERY 180TH DAY60 MILLIGRAM
     Route: 058
     Dates: start: 20210924
  10. ESOMEPRAZOLE [Concomitant]
     Active Substance: ESOMEPRAZOLE
     Indication: Gastric pH decreased
     Dosage: 40 MILLIGRAM, BID
     Route: 048
     Dates: start: 20210924
  11. PROPOFOL [Concomitant]
     Active Substance: PROPOFOL
     Indication: Endoscopy upper gastrointestinal tract
     Dosage: 700 MILLIGRAM,2 DOSES
     Route: 042
     Dates: start: 20210923, end: 20210923
  12. PROPOFOL [Concomitant]
     Active Substance: PROPOFOL
     Indication: Colonoscopy
  13. CHOLESTYRAMINE [Concomitant]
     Active Substance: CHOLESTYRAMINE
     Indication: Bile acid malabsorption
     Dosage: 4 GRAM, TID
     Route: 048
     Dates: start: 20210830

REACTIONS (1)
  - Vascular device infection [Recovered/Resolved]

NARRATIVE: CASE EVENT DATE: 20210816
